FAERS Safety Report 23749328 (Version 2)
Quarter: 2024Q3

REPORT INFORMATION
  Report Type: Spontaneous
  Country: US (occurrence: US)
  Receive Date: 20240416
  Receipt Date: 20240725
  Transmission Date: 20241017
  Serious: No
  Sender: CALLIDITAS THERAPEUTICS
  Company Number: US-Calliditas-2024CAL00564

PATIENT
  Age: 58 Year
  Sex: Female
  Weight: 95.7 kg

DRUGS (1)
  1. TARPEYO [Suspect]
     Active Substance: BUDESONIDE
     Indication: IgA nephropathy
     Route: 048
     Dates: start: 20240320

REACTIONS (10)
  - Abdominal pain upper [Unknown]
  - Abdominal discomfort [Unknown]
  - Feeling abnormal [Unknown]
  - Anxiety [Unknown]
  - Vaginal haemorrhage [Recovered/Resolved]
  - Anal haemorrhage [Recovered/Resolved]
  - Weight increased [Unknown]
  - Ear discomfort [Unknown]
  - Hypoacusis [Unknown]
  - Anxiety [Unknown]
